FAERS Safety Report 14600195 (Version 1)
Quarter: 2018Q1

REPORT INFORMATION
  Report Type: Spontaneous
  Country: IL (occurrence: IL)
  Receive Date: 20180305
  Receipt Date: 20180305
  Transmission Date: 20180509
  Serious: Yes (Hospitalization, Other)
  Sender: FDA-Public Use
  Company Number: IL-MYLANLABS-2018M1013642

PATIENT
  Age: 8 Year
  Sex: Male

DRUGS (2)
  1. NORADRENALIN                       /00127501/ [Concomitant]
     Active Substance: NOREPINEPHRINE\NOREPINEPHRINE BITARTRATE
     Indication: PRODUCT USED FOR UNKNOWN INDICATION
     Dosage: 0.08 MICROG/KG/MIN
     Route: 065
     Dates: start: 201311
  2. HEPARIN [Suspect]
     Active Substance: HEPARIN SODIUM
     Indication: PRODUCT USED FOR UNKNOWN INDICATION
     Dosage: UNK
     Route: 050
     Dates: start: 201311

REACTIONS (3)
  - Heparin-induced thrombocytopenia [Recovering/Resolving]
  - Pulmonary artery occlusion [Unknown]
  - Intracardiac thrombus [Unknown]

NARRATIVE: CASE EVENT DATE: 2013
